FAERS Safety Report 6860431-7 (Version None)
Quarter: 2010Q3

REPORT INFORMATION
  Report Type: 
  Country: None (occurrence: None)
  Receive Date: 20100720
  Receipt Date: 20100712
  Transmission Date: 20110219
  Serious: Yes (Hospitalization, Other)
  Sender: FDA-Public Use
  Company Number: BR-ABBOTT-09P-020-0601680-00

PATIENT
  Sex: Female
  Weight: 58 kg

DRUGS (5)
  1. HUMIRA [Suspect]
     Indication: RHEUMATOID ARTHRITIS
     Route: 058
     Dates: start: 20090401, end: 20090901
  2. HUMIRA [Suspect]
  3. PREDNISONE [Concomitant]
     Indication: RHEUMATOID ARTHRITIS
     Route: 048
  4. PURAN T4 [Concomitant]
     Indication: HYPOTHYROIDISM
     Route: 048
  5. ARAVA [Concomitant]
     Indication: RHEUMATOID ARTHRITIS
     Route: 048

REACTIONS (7)
  - ARTHRALGIA [None]
  - CHILLS [None]
  - HEPATITIS [None]
  - NAUSEA [None]
  - PYREXIA [None]
  - TUBERCULOSIS [None]
  - WEIGHT DECREASED [None]
